FAERS Safety Report 20481180 (Version 2)
Quarter: 2022Q1

REPORT INFORMATION
  Report Type: Spontaneous
  Country: FR (occurrence: FR)
  Receive Date: 20220216
  Receipt Date: 20220329
  Transmission Date: 20220424
  Serious: Yes (Hospitalization)
  Sender: FDA-Public Use
  Company Number: FR-MYLANLABS-2022M1012347

PATIENT
  Sex: Female

DRUGS (2)
  1. ARIXTRA [Suspect]
     Active Substance: FONDAPARINUX SODIUM
     Indication: Phlebitis
     Dosage: UNK, FOR 3 WEEKS
     Dates: start: 2008
  2. ARIXTRA [Suspect]
     Active Substance: FONDAPARINUX SODIUM
     Dosage: UNK
     Dates: start: 201012, end: 201101

REACTIONS (6)
  - Muscular weakness [Unknown]
  - Fall [Unknown]
  - Back disorder [Unknown]
  - Movement disorder [Unknown]
  - Pain in extremity [Unknown]
  - Off label use [Unknown]
